FAERS Safety Report 5611607-8 (Version None)
Quarter: 2008Q1

REPORT INFORMATION
  Report Type: 
  Country: None (occurrence: None)
  Receive Date: 20080201
  Receipt Date: 20080128
  Transmission Date: 20080703
  Serious: Yes (Other)
  Sender: FDA-Public Use
  Company Number: US-GENENTECH-253710

PATIENT
  Sex: Female
  Weight: 55.329 kg

DRUGS (2)
  1. AVASTIN [Suspect]
     Indication: NON-SMALL CELL LUNG CANCER
     Dosage: UNK, UNK
  2. ERLOTINIB [Suspect]
     Indication: NON-SMALL CELL LUNG CANCER

REACTIONS (4)
  - DRUG ERUPTION [None]
  - DYSPHAGIA [None]
  - ORAL HERPES [None]
  - RASH [None]
